FAERS Safety Report 20449627 (Version 1)
Quarter: 2022Q1

REPORT INFORMATION
  Report Type: Spontaneous
  Country: US (occurrence: None)
  Receive Date: 20220209
  Receipt Date: 20220209
  Transmission Date: 20220424
  Serious: Yes (Death, Hospitalization)
  Sender: FDA-Public Use
  Company Number: None

PATIENT
  Sex: Female
  Weight: 101.06 kg

DRUGS (1)
  1. ASPIRIN [Suspect]
     Active Substance: ASPIRIN
     Dates: end: 20210509

REACTIONS (4)
  - Dyspnoea [None]
  - Metastases to spine [None]
  - Spinal stenosis [None]
  - Breast cancer metastatic [None]

NARRATIVE: CASE EVENT DATE: 20210509
